FAERS Safety Report 11432665 (Version 1)
Quarter: 2015Q3

REPORT INFORMATION
  Report Type: Spontaneous
  Country: DK (occurrence: DE)
  Receive Date: 20150828
  Receipt Date: 20150828
  Transmission Date: 20151125
  Serious: Yes (Other)
  Sender: FDA-Public Use
  Company Number: DE-FRI-1000078228

PATIENT
  Age: 59 Year
  Sex: Male

DRUGS (95)
  1. ESCITALOPRAM [Suspect]
     Active Substance: ESCITALOPRAM OXALATE
     Dosage: 10 MG
     Route: 065
     Dates: start: 20081230, end: 20090123
  2. ESCITALOPRAM [Suspect]
     Active Substance: ESCITALOPRAM OXALATE
     Dosage: OVERDOSE: 30 MG/DAY
     Route: 065
     Dates: start: 20090409, end: 20090422
  3. ANAESTHETICS [Suspect]
     Active Substance: UNSPECIFIED INGREDIENT
     Dosage: SUCCINYLCHOLINE 90 / METHOHEXITAL SODIUM 90
     Route: 065
     Dates: start: 20090309, end: 20090309
  4. ANAESTHETICS [Suspect]
     Active Substance: UNSPECIFIED INGREDIENT
     Dosage: SUCCINYLCHOLINE 90 / METHOHEXITAL SODIUM 90
     Route: 065
     Dates: start: 20090311, end: 20090311
  5. ANAESTHETICS [Suspect]
     Active Substance: UNSPECIFIED INGREDIENT
     Dosage: SUCCINYLCHOLINE 90 / METHOHEXITAL SODIUM 90
     Route: 065
     Dates: start: 20090401, end: 20090401
  6. ANAESTHETICS [Suspect]
     Active Substance: UNSPECIFIED INGREDIENT
     Dosage: SUCCINYLCHOLINE 90 / METHOHEXITAL SODIUM 90
     Route: 065
     Dates: start: 20090427, end: 20090427
  7. MIRTAZAPINE. [Suspect]
     Active Substance: MIRTAZAPINE
     Indication: PRODUCT USED FOR UNKNOWN INDICATION
     Dosage: 15 MG
     Route: 065
     Dates: start: 20090222, end: 20090223
  8. SEROQUEL [Concomitant]
     Active Substance: QUETIAPINE FUMARATE
     Dosage: 600 MG
     Route: 065
     Dates: start: 20090421
  9. KALINOR BRAUSE [Concomitant]
     Dosage: 2 DF
     Route: 048
     Dates: start: 20090122, end: 20090123
  10. COTRIM [Concomitant]
     Active Substance: SULFAMETHOXAZOLE\TRIMETHOPRIM
     Dosage: 1920 MG
     Route: 065
     Dates: start: 20090121, end: 20090125
  11. COTRIM [Concomitant]
     Active Substance: SULFAMETHOXAZOLE\TRIMETHOPRIM
     Dosage: 960 MG
     Route: 065
     Dates: start: 20090226, end: 20090226
  12. PARACETAMOL [Concomitant]
     Active Substance: ACETAMINOPHEN
     Indication: PRODUCT USED FOR UNKNOWN INDICATION
     Dosage: 500 MG
     Route: 065
     Dates: start: 20090120, end: 20090120
  13. ESCITALOPRAM [Suspect]
     Active Substance: ESCITALOPRAM OXALATE
     Dosage: 20 MG
     Route: 065
     Dates: start: 20090124, end: 20090201
  14. ESCITALOPRAM [Suspect]
     Active Substance: ESCITALOPRAM OXALATE
     Dosage: OVERDOSE: 30 MG/DAY
     Route: 065
     Dates: start: 20090202, end: 20090323
  15. ANAESTHETICS [Suspect]
     Active Substance: UNSPECIFIED INGREDIENT
     Dosage: SUCCINYLCHOLINE 90 / METHOHEXITAL SODIUM 90
     Route: 065
     Dates: start: 20090325, end: 20090325
  16. BELOC ZOK MITE [Concomitant]
     Active Substance: METOPROLOL SUCCINATE
     Dosage: 47.5 MG
     Route: 065
     Dates: start: 20081219, end: 20081231
  17. SEROQUEL [Concomitant]
     Active Substance: QUETIAPINE FUMARATE
     Dosage: 800 MG
     Route: 065
     Dates: start: 20090305, end: 20090305
  18. KALINOR BRAUSE [Concomitant]
     Dosage: 1 DF
     Route: 048
     Dates: start: 20090124, end: 20090124
  19. STEROFUNDIN [Concomitant]
     Dosage: 500 ML
     Route: 065
     Dates: start: 20090325, end: 20090325
  20. PARACETAMOL [Concomitant]
     Active Substance: ACETAMINOPHEN
     Dosage: 500 MG
     Route: 065
     Dates: start: 20090309, end: 20090309
  21. RANITIDIN [Concomitant]
     Active Substance: RANITIDINE HYDROCHLORIDE
     Dosage: 300 MG
     Route: 065
     Dates: start: 20090505, end: 20090505
  22. RANITIDIN [Concomitant]
     Active Substance: RANITIDINE HYDROCHLORIDE
     Dosage: 300 MG
     Route: 065
     Dates: start: 20090507, end: 20090507
  23. ARICEPT [Concomitant]
     Active Substance: DONEPEZIL HYDROCHLORIDE
     Indication: PRODUCT USED FOR UNKNOWN INDICATION
     Dosage: 5 MG
     Route: 065
     Dates: start: 20090405, end: 20090411
  24. ANAESTHETICS [Suspect]
     Active Substance: UNSPECIFIED INGREDIENT
     Dosage: SUCCINYLCHOLINE 90 / METHOHEXITAL SODIUM 90
     Route: 065
     Dates: start: 20090112, end: 20090112
  25. ANAESTHETICS [Suspect]
     Active Substance: UNSPECIFIED INGREDIENT
     Dosage: SUCCINYLCHOLINE 90 / METHOHEXITAL SODIUM 90
     Route: 065
     Dates: start: 20090320, end: 20090320
  26. ANAESTHETICS [Suspect]
     Active Substance: UNSPECIFIED INGREDIENT
     Dosage: SUCCINYLCHOLINE 90 / METHOHEXITAL SODIUM 90
     Route: 065
     Dates: start: 20090508, end: 20090508
  27. MIRTAZAPINE. [Suspect]
     Active Substance: MIRTAZAPINE
     Dosage: 30 MG
     Route: 065
     Dates: start: 20090224, end: 20090226
  28. RIVOTRIL [Concomitant]
     Active Substance: CLONAZEPAM
     Dosage: 0.25 MG
     Route: 065
     Dates: start: 20090203, end: 20090206
  29. RIVOTRIL [Concomitant]
     Active Substance: CLONAZEPAM
     Dosage: 0.75 MG
     Route: 065
     Dates: start: 20090305, end: 20090311
  30. ACC LONG [Concomitant]
     Indication: PRODUCT USED FOR UNKNOWN INDICATION
     Dosage: 600 MG
     Route: 065
     Dates: start: 20090114, end: 20090128
  31. CEFUROXIM [Concomitant]
     Active Substance: CEFUROXIME
     Dosage: 500 MG
     Route: 065
     Dates: start: 20090409, end: 20090416
  32. ANAESTHETICS [Suspect]
     Active Substance: UNSPECIFIED INGREDIENT
     Dosage: SUCCINYLCHOLINE 90 / METHOHEXITAL SODIUM 90
     Route: 065
     Dates: start: 20090109, end: 20090109
  33. ANAESTHETICS [Suspect]
     Active Substance: UNSPECIFIED INGREDIENT
     Dosage: SUCCINYLCHOLINE 90 / METHOHEXITAL SODIUM 90
     Route: 065
     Dates: start: 20090323, end: 20090323
  34. MIRTAZAPINE. [Suspect]
     Active Substance: MIRTAZAPINE
     Dosage: 45 MG
     Route: 065
     Dates: start: 20090227, end: 20090302
  35. MIRTAZAPINE. [Suspect]
     Active Substance: MIRTAZAPINE
     Dosage: 60 MG
     Route: 065
     Dates: start: 20090423
  36. SEROQUEL [Concomitant]
     Active Substance: QUETIAPINE FUMARATE
     Indication: PRODUCT USED FOR UNKNOWN INDICATION
     Dosage: 100 MG
     Route: 065
     Dates: start: 20081230, end: 20090122
  37. SEROQUEL [Concomitant]
     Active Substance: QUETIAPINE FUMARATE
     Dosage: 400 MG
     Route: 065
     Dates: start: 20090303, end: 20090303
  38. RIVOTRIL [Concomitant]
     Active Substance: CLONAZEPAM
     Dosage: 0.5 MG
     Route: 065
     Dates: start: 20090312, end: 20090320
  39. CLEXANE [Concomitant]
     Active Substance: ENOXAPARIN SODIUM
     Indication: PRODUCT USED FOR UNKNOWN INDICATION
     Dosage: 0.3 MG
     Route: 065
     Dates: start: 20081219, end: 20081219
  40. COTRIM [Concomitant]
     Active Substance: SULFAMETHOXAZOLE\TRIMETHOPRIM
     Dosage: 1920 MG
     Route: 065
     Dates: start: 20090430, end: 20090430
  41. ACC LONG [Concomitant]
     Dosage: 800 MG
     Route: 065
     Dates: start: 20090225, end: 20090225
  42. CEFUROXIM [Concomitant]
     Active Substance: CEFUROXIME
     Indication: PRODUCT USED FOR UNKNOWN INDICATION
     Dosage: 1 DF
     Route: 042
     Dates: start: 20090308, end: 20090308
  43. RANITIDIN [Concomitant]
     Active Substance: RANITIDINE HYDROCHLORIDE
     Dosage: 300 MG
     Route: 065
     Dates: start: 20090428, end: 20090428
  44. ESCITALOPRAM [Suspect]
     Active Substance: ESCITALOPRAM OXALATE
     Dosage: OVERDOSE: 40 MG/DAY
     Route: 065
     Dates: start: 20090324, end: 20090408
  45. ANAESTHETICS [Suspect]
     Active Substance: UNSPECIFIED INGREDIENT
     Indication: PRODUCT USED FOR UNKNOWN INDICATION
     Dosage: SUCCINYLCHOLINE 100 / METHOHEXITAL SODIUM 90
     Route: 065
     Dates: start: 20090102, end: 20090102
  46. ANAESTHETICS [Suspect]
     Active Substance: UNSPECIFIED INGREDIENT
     Dosage: SUCCINYLCHOLINE 90 / METHOHEXITAL SODIUM 90
     Route: 065
     Dates: start: 20090313, end: 20090313
  47. ANAESTHETICS [Suspect]
     Active Substance: UNSPECIFIED INGREDIENT
     Dosage: SUCCINYLCHOLINE 90 / METHOHEXITAL SODIUM 90
     Route: 065
     Dates: start: 20090424, end: 20090424
  48. ANAESTHETICS [Suspect]
     Active Substance: UNSPECIFIED INGREDIENT
     Dosage: SUCCINYLCHOLINE 90 / METHOHEXITAL SODIUM 90
     Route: 065
     Dates: start: 20090504, end: 20090504
  49. MIRTAZAPINE. [Suspect]
     Active Substance: MIRTAZAPINE
     Dosage: 15 MG
     Route: 065
     Dates: start: 20090224, end: 20090408
  50. MIRTAZAPINE. [Suspect]
     Active Substance: MIRTAZAPINE
     Dosage: 15 MG
     Route: 065
     Dates: start: 20090410, end: 20090414
  51. BELOC ZOK MITE [Concomitant]
     Active Substance: METOPROLOL SUCCINATE
     Indication: PRODUCT USED FOR UNKNOWN INDICATION
     Dosage: 23.75 MG
     Route: 065
     Dates: start: 20081218, end: 20081218
  52. BELOC ZOK MITE [Concomitant]
     Active Substance: METOPROLOL SUCCINATE
     Dosage: 23.75 MG
     Route: 065
     Dates: start: 20090101
  53. SEROQUEL [Concomitant]
     Active Substance: QUETIAPINE FUMARATE
     Dosage: 400 MG
     Route: 065
     Dates: start: 20090201, end: 20090212
  54. SEROQUEL [Concomitant]
     Active Substance: QUETIAPINE FUMARATE
     Dosage: 800 MG
     Route: 065
     Dates: start: 20090227, end: 20090302
  55. SEROQUEL [Concomitant]
     Active Substance: QUETIAPINE FUMARATE
     Dosage: 400 MG
     Route: 065
     Dates: start: 20090306, end: 20090420
  56. RIVOTRIL [Concomitant]
     Active Substance: CLONAZEPAM
     Dosage: 0.5 MG
     Route: 065
     Dates: start: 20081230, end: 20090102
  57. TAVOR [Concomitant]
     Active Substance: LORAZEPAM
     Indication: PRODUCT USED FOR UNKNOWN INDICATION
     Dosage: 1 MG
     Route: 065
     Dates: start: 20081218, end: 20081219
  58. STEROFUNDIN [Concomitant]
     Dosage: 500 ML
     Route: 065
     Dates: start: 20090308, end: 20090311
  59. RANITIDIN [Concomitant]
     Active Substance: RANITIDINE HYDROCHLORIDE
     Dosage: 300 MG
     Route: 065
     Dates: start: 20090426, end: 20090426
  60. ANAESTHETICS [Suspect]
     Active Substance: UNSPECIFIED INGREDIENT
     Dosage: SUCCINYLCHOLINE 90 / METHOHEXITAL SODIUM 90
     Route: 065
     Dates: start: 20090306, end: 20090306
  61. ANAESTHETICS [Suspect]
     Active Substance: UNSPECIFIED INGREDIENT
     Dosage: SUCCINYLCHOLINE 90 / METHOHEXITAL SODIUM 90
     Route: 065
     Dates: start: 20090316, end: 20090316
  62. ANAESTHETICS [Suspect]
     Active Substance: UNSPECIFIED INGREDIENT
     Dosage: SUCCINYLCHOLINE 90 / METHOHEXITAL SODIUM 90
     Route: 065
     Dates: start: 20090327, end: 20090327
  63. MIRTAZAPINE. [Suspect]
     Active Substance: MIRTAZAPINE
     Dosage: 30 MG
     Route: 065
     Dates: start: 20090315, end: 20090420
  64. SEROQUEL [Concomitant]
     Active Substance: QUETIAPINE FUMARATE
     Dosage: 200 MG
     Route: 065
     Dates: start: 20090123, end: 20090123
  65. SEROQUEL [Concomitant]
     Active Substance: QUETIAPINE FUMARATE
     Dosage: 600 MG
     Route: 065
     Dates: start: 20090213, end: 20090226
  66. RIVOTRIL [Concomitant]
     Active Substance: CLONAZEPAM
     Indication: PRODUCT USED FOR UNKNOWN INDICATION
     Dosage: 1 MG
     Route: 065
     Dates: start: 20081219, end: 20081229
  67. KALINOR BRAUSE [Concomitant]
     Indication: PRODUCT USED FOR UNKNOWN INDICATION
     Dosage: 1 DF
     Route: 048
     Dates: start: 20090121, end: 20090121
  68. RANITIDIN [Concomitant]
     Active Substance: RANITIDINE HYDROCHLORIDE
     Dosage: 300 MG
     Route: 065
     Dates: start: 20090423, end: 20090423
  69. ESCITALOPRAM [Suspect]
     Active Substance: ESCITALOPRAM OXALATE
     Dosage: OVERDOSE: 40 MG/DAY
     Route: 065
     Dates: start: 20090423, end: 20090503
  70. ESCITALOPRAM [Suspect]
     Active Substance: ESCITALOPRAM OXALATE
     Dosage: 20 MG
     Route: 065
     Dates: start: 20090504
  71. ANAESTHETICS [Suspect]
     Active Substance: UNSPECIFIED INGREDIENT
     Dosage: SUCCINYLCHOLINE 100 / METHOHEXITAL SODIUM 90
     Route: 065
     Dates: start: 20090105, end: 20090105
  72. ANAESTHETICS [Suspect]
     Active Substance: UNSPECIFIED INGREDIENT
     Dosage: SUCCINYLCHOLINE 90 / METHOHEXITAL SODIUM 90
     Route: 065
     Dates: start: 20090318, end: 20090318
  73. ANAESTHETICS [Suspect]
     Active Substance: UNSPECIFIED INGREDIENT
     Dosage: SUCCINYLCHOLINE 90 / METHOHEXITAL SODIUM 90
     Route: 065
     Dates: start: 20090429, end: 20090429
  74. MIRTAZAPINE. [Suspect]
     Active Substance: MIRTAZAPINE
     Dosage: 30 MG
     Route: 065
     Dates: start: 20090409, end: 20090409
  75. MIRTAZAPINE. [Suspect]
     Active Substance: MIRTAZAPINE
     Dosage: 45 MG
     Route: 065
     Dates: start: 20090421, end: 20090422
  76. THYROXIN [Concomitant]
     Active Substance: LEVOTHYROXINE
     Indication: PRODUCT USED FOR UNKNOWN INDICATION
     Dosage: 150 MCG
     Route: 065
     Dates: start: 20081219
  77. ASPIRIN. [Concomitant]
     Active Substance: ASPIRIN
     Indication: PRODUCT USED FOR UNKNOWN INDICATION
     Dosage: 100 MG
     Route: 065
     Dates: start: 20081219, end: 20090213
  78. STEROFUNDIN [Concomitant]
     Indication: PRODUCT USED FOR UNKNOWN INDICATION
     Dosage: 500 ML
     Route: 065
     Dates: start: 20090121, end: 20090121
  79. IBUPROFEN. [Concomitant]
     Active Substance: IBUPROFEN
     Indication: PRODUCT USED FOR UNKNOWN INDICATION
     Dosage: 800 MG
     Route: 065
     Dates: start: 20090302, end: 20090302
  80. RANITIDIN [Concomitant]
     Active Substance: RANITIDINE HYDROCHLORIDE
     Indication: PRODUCT USED FOR UNKNOWN INDICATION
     Dosage: 300 MG
     Route: 065
     Dates: start: 20090405, end: 20090405
  81. RANITIDIN [Concomitant]
     Active Substance: RANITIDINE HYDROCHLORIDE
     Dosage: 300 MG
     Route: 065
     Dates: start: 20090401, end: 20090401
  82. ESCITALOPRAM [Suspect]
     Active Substance: ESCITALOPRAM OXALATE
     Indication: PRODUCT USED FOR UNKNOWN INDICATION
     Dosage: 5 MG
     Route: 065
     Dates: start: 20081229, end: 20081229
  83. ANAESTHETICS [Suspect]
     Active Substance: UNSPECIFIED INGREDIENT
     Dosage: SUCCINYLCHOLINE 90 / METHOHEXITAL SODIUM 90
     Route: 065
     Dates: start: 20090107, end: 20090107
  84. ANAESTHETICS [Suspect]
     Active Substance: UNSPECIFIED INGREDIENT
     Dosage: SUCCINYLCHOLINE 90 / METHOHEXITAL SODIUM 90
     Route: 065
     Dates: start: 20090330, end: 20090330
  85. ANAESTHETICS [Suspect]
     Active Substance: UNSPECIFIED INGREDIENT
     Dosage: SUCCINYLCHOLINE 90 / METHOHEXITAL SODIUM 90
     Route: 065
     Dates: start: 20090506, end: 20090506
  86. MIRTAZAPINE. [Suspect]
     Active Substance: MIRTAZAPINE
     Dosage: 30 MG
     Route: 065
     Dates: start: 20090303, end: 20090323
  87. SEROQUEL [Concomitant]
     Active Substance: QUETIAPINE FUMARATE
     Dosage: 250 MG
     Route: 065
     Dates: start: 20090124, end: 20090124
  88. SEROQUEL [Concomitant]
     Active Substance: QUETIAPINE FUMARATE
     Dosage: 300 MG
     Route: 065
     Dates: start: 20090125, end: 20090131
  89. SEROQUEL [Concomitant]
     Active Substance: QUETIAPINE FUMARATE
     Dosage: 600 MG
     Route: 065
     Dates: start: 20090304, end: 20090304
  90. CLEXANE [Concomitant]
     Active Substance: ENOXAPARIN SODIUM
     Dosage: 0.6 MG
     Route: 065
     Dates: start: 20091220
  91. COTRIM [Concomitant]
     Active Substance: SULFAMETHOXAZOLE\TRIMETHOPRIM
     Indication: PRODUCT USED FOR UNKNOWN INDICATION
     Dosage: 960 MG
     Route: 065
     Dates: start: 20090120, end: 20090120
  92. CEFUROXIM [Concomitant]
     Active Substance: CEFUROXIME
     Dosage: 0.5 DF
     Route: 042
     Dates: start: 20090309, end: 20090315
  93. RANITIDIN [Concomitant]
     Active Substance: RANITIDINE HYDROCHLORIDE
     Dosage: 300 MG
     Route: 065
     Dates: start: 20090503, end: 20090503
  94. CIPROBAY [Concomitant]
     Active Substance: CIPROFLOXACIN
     Indication: PRODUCT USED FOR UNKNOWN INDICATION
     Dosage: 500 MG
     Route: 065
     Dates: start: 20090430
  95. ATROPIN [Concomitant]
     Active Substance: ATROPINE
     Indication: ARRHYTHMIA
     Route: 065
     Dates: start: 20090107

REACTIONS (10)
  - Anaesthetic complication [Unknown]
  - Influenza like illness [Unknown]
  - Pyrexia [Unknown]
  - Abnormal dreams [Unknown]
  - Enuresis [Unknown]
  - Prescribed overdose [Unknown]
  - Oxygen saturation decreased [Unknown]
  - Differential white blood cell count abnormal [Unknown]
  - Arrhythmia [Unknown]
  - Serotonin syndrome [Unknown]

NARRATIVE: CASE EVENT DATE: 200901
